FAERS Safety Report 18867696 (Version 1)
Quarter: 2021Q1

REPORT INFORMATION
  Report Type: Spontaneous
  Country: FR (occurrence: FR)
  Receive Date: 20210209
  Receipt Date: 20210209
  Transmission Date: 20210420
  Serious: Yes (Hospitalization)
  Sender: FDA-Public Use
  Company Number: FR-TEVA-2021-FR-1877513

PATIENT
  Age: 82 Year
  Sex: Male
  Weight: 67 kg

DRUGS (2)
  1. ACICLOVIR MYLAN [Suspect]
     Active Substance: ACYCLOVIR
     Indication: MENINGOENCEPHALITIS HERPETIC
     Dosage: 350 MG
     Route: 041
     Dates: start: 20201111, end: 20201113
  2. VALACICLOVIR [Suspect]
     Active Substance: VALACYCLOVIR HYDROCHLORIDE
     Indication: HERPES ZOSTER
     Route: 048
     Dates: start: 20201110, end: 20201111

REACTIONS (2)
  - Overdose [Recovered/Resolved]
  - Toxic encephalopathy [Recovered/Resolved]

NARRATIVE: CASE EVENT DATE: 20201110
